FAERS Safety Report 17783699 (Version 1)
Quarter: 2020Q2

REPORT INFORMATION
  Report Type: Spontaneous
  Country: IT (occurrence: IT)
  Receive Date: 20200514
  Receipt Date: 20200514
  Transmission Date: 20200714
  Serious: Yes (Hospitalization)
  Sender: FDA-Public Use
  Company Number: IT-ACCORD-181497

PATIENT
  Age: 44 Year
  Sex: Female

DRUGS (5)
  1. CLONAZEPAM. [Suspect]
     Active Substance: CLONAZEPAM
     Indication: PRODUCT USED FOR UNKNOWN INDICATION
  2. VALPROIC ACID. [Concomitant]
     Active Substance: VALPROIC ACID
     Indication: SEIZURE PROPHYLAXIS
  3. LORMETAZEPAM [Suspect]
     Active Substance: LORMETAZEPAM
     Indication: PRODUCT USED FOR UNKNOWN INDICATION
  4. FLUMAZENIL. [Concomitant]
     Active Substance: FLUMAZENIL
     Indication: DRUG DETOXIFICATION
     Route: 041
  5. LORAZEPAM. [Suspect]
     Active Substance: LORAZEPAM
     Indication: PRODUCT USED FOR UNKNOWN INDICATION

REACTIONS (10)
  - Drug abuse [Unknown]
  - Drug withdrawal convulsions [Recovered/Resolved]
  - Behaviour disorder [Recovered/Resolved]
  - Epilepsy [Recovered/Resolved]
  - Confusional state [Recovered/Resolved]
  - Automatism [Recovered/Resolved]
  - Altered state of consciousness [Recovered/Resolved]
  - Disorientation [Unknown]
  - Withdrawal syndrome [Recovered/Resolved]
  - Electrocardiogram delta waves abnormal [Recovered/Resolved]
